FAERS Safety Report 11021652 (Version 2)
Quarter: 2015Q2

REPORT INFORMATION
  Report Type: Spontaneous
  Country: US (occurrence: US)
  Receive Date: 20150413
  Receipt Date: 20150619
  Transmission Date: 20150821
  Serious: Yes (Other)
  Sender: FDA-Public Use
  Company Number: US-BAYER-2015-116221

PATIENT
  Age: 19 Year
  Sex: Female

DRUGS (1)
  1. MIRENA [Suspect]
     Active Substance: LEVONORGESTREL
     Indication: CONTRACEPTION
     Dosage: 20 MCG/24HR, CONT
     Route: 015
     Dates: start: 201207, end: 201305

REACTIONS (12)
  - Injury [Not Recovered/Not Resolved]
  - Pelvic inflammatory disease [None]
  - Abdominal pain [Not Recovered/Not Resolved]
  - Complication of device removal [None]
  - General physical health deterioration [Not Recovered/Not Resolved]
  - Uterine perforation [Not Recovered/Not Resolved]
  - Pelvic pain [Not Recovered/Not Resolved]
  - Scar [None]
  - Depression [None]
  - Anxiety [None]
  - Device breakage [None]
  - Emotional distress [None]

NARRATIVE: CASE EVENT DATE: 201207
